FAERS Safety Report 4496148-6 (Version None)
Quarter: 2004Q4

REPORT INFORMATION
  Report Type: 
  Country: None (occurrence: None)
  Receive Date: 20041108
  Receipt Date: 20041108
  Transmission Date: 20050328
  Serious: Yes (Life-Threatening, Hospitalization)
  Sender: FDA-Public Use
  Company Number: None

PATIENT
  Sex: Male
  Weight: 86 kg

DRUGS (6)
  1. LAMICTAL [Suspect]
     Indication: DEPRESSION
     Dosage: 25 MG/50 MG QD ORAL
     Route: 048
     Dates: start: 20041009, end: 20041022
  2. LAMICTAL [Suspect]
     Indication: POST-TRAUMATIC STRESS DISORDER
     Dosage: 25 MG/50 MG QD ORAL
     Route: 048
     Dates: start: 20041009, end: 20041022
  3. BUSPAR [Concomitant]
  4. LEXAPRO [Concomitant]
  5. INDERAL [Concomitant]
  6. VERAPAMIL [Concomitant]

REACTIONS (7)
  - BLISTER [None]
  - CHILLS [None]
  - PHARYNGOLARYNGEAL PAIN [None]
  - PYREXIA [None]
  - RASH GENERALISED [None]
  - SKIN LESION [None]
  - SWELLING FACE [None]
